FAERS Safety Report 7419771-5 (Version None)
Quarter: 2011Q2

REPORT INFORMATION
  Report Type: 
  Country: None (occurrence: None)
  Receive Date: 20110413
  Receipt Date: 20110413
  Transmission Date: 20111010
  Serious: Yes (Other)
  Sender: FDA-Public Use
  Company Number: None

PATIENT
  Sex: Female
  Weight: 58.514 kg

DRUGS (1)
  1. FOSAMAX [Suspect]
     Indication: OSTEOPOROSIS
     Dosage: 1 TABLET 1 PER WK. BY MOUTH
     Route: 048

REACTIONS (4)
  - GASTRIC ULCER [None]
  - ABDOMINAL PAIN UPPER [None]
  - FEMUR FRACTURE [None]
  - BARRETT'S OESOPHAGUS [None]
